FAERS Safety Report 5795879-5 (Version None)
Quarter: 2008Q3

REPORT INFORMATION
  Report Type: 
  Country: None (occurrence: None)
  Receive Date: 20080701
  Receipt Date: 20080626
  Transmission Date: 20090109
  Serious: Yes (Other)
  Sender: FDA-Public Use
  Company Number: US-RANBAXY-2008RR-16109

PATIENT

DRUGS (5)
  1. SIMVASTATIN [Suspect]
     Dosage: 40 MG, QD
  2. SIMVASTATIN [Suspect]
     Dosage: 80 MG, QD
  3. SITAGLIPTIN [Suspect]
     Dosage: 50 MG, QD
  4. SITAGLIPTIN [Suspect]
     Dosage: 100 MG, QD
  5. EZETIMIBE [Concomitant]

REACTIONS (3)
  - DRUG INTERACTION [None]
  - RENAL FAILURE ACUTE [None]
  - RHABDOMYOLYSIS [None]
